FAERS Safety Report 4278924-8 (Version None)
Quarter: 2004Q1

REPORT INFORMATION
  Report Type: 
  Country: None (occurrence: None)
  Receive Date: 20040122
  Receipt Date: 20040105
  Transmission Date: 20041129
  Serious: Yes (Other)
  Sender: FDA-Public Use
  Company Number: A0491757A

PATIENT
  Age: 16 Year
  Sex: Female

DRUGS (2)
  1. PAXIL [Suspect]
     Indication: DEPRESSION
     Dosage: 20 MG/PER DAY/ORAL/MONTHS
     Route: 048
  2. CANCER CHEMOTHERAPY [Concomitant]

REACTIONS (13)
  - ABNORMAL BEHAVIOUR [None]
  - DEPRESSION [None]
  - DIFFICULTY IN WALKING [None]
  - DISCOMFORT [None]
  - DIZZINESS [None]
  - DYSKINESIA [None]
  - FEAR [None]
  - INSOMNIA [None]
  - IRRITABILITY [None]
  - MORBID THOUGHTS [None]
  - PARAESTHESIA [None]
  - SCREAMING [None]
  - SUICIDE ATTEMPT [None]
